FAERS Safety Report 11351398 (Version 1)
Quarter: 2015Q3

REPORT INFORMATION
  Report Type: Spontaneous
  Country: US (occurrence: US)
  Receive Date: 20150807
  Receipt Date: 20150807
  Transmission Date: 20151125
  Serious: No
  Sender: FDA-Public Use
  Company Number: US-JNJFOC-20150119401

PATIENT
  Age: 63 Year
  Sex: Female
  Weight: 53.07 kg

DRUGS (3)
  1. BIOTIN [Concomitant]
     Active Substance: BIOTIN
     Indication: HAIR DISORDER
     Route: 065
  2. WOMENS ROGAINE UNSCENTED [Suspect]
     Active Substance: MINOXIDIL
     Route: 061
  3. WOMENS ROGAINE UNSCENTED [Suspect]
     Active Substance: MINOXIDIL
     Indication: ALOPECIA
     Dosage: HALF A CAPFUL, ONCE A DAY
     Route: 061
     Dates: start: 201412

REACTIONS (2)
  - Alopecia [Not Recovered/Not Resolved]
  - Drug administered at inappropriate site [Unknown]
